FAERS Safety Report 20999234 (Version 1)
Quarter: 2022Q2

REPORT INFORMATION
  Report Type: Spontaneous
  Country: US (occurrence: None)
  Receive Date: 20220622
  Receipt Date: 20220622
  Transmission Date: 20220721
  Serious: Yes (Disabling)
  Sender: FDA-Public Use
  Company Number: None

PATIENT
  Age: 69 Year
  Sex: Female
  Weight: 56.7 kg

DRUGS (20)
  1. EVUSHELD [Suspect]
     Active Substance: CILGAVIMAB\TIXAGEVIMAB
     Indication: Autoimmune disorder
     Dosage: FREQUENCY : ONCE;?
     Route: 030
     Dates: start: 20220530, end: 20220530
  2. CORTISONE [Concomitant]
     Active Substance: CORTISONE
  3. Gamunex-C-immune globulin [Concomitant]
  4. ALLEGRA [Concomitant]
     Active Substance: FEXOFENADINE HYDROCHLORIDE
  5. LEVOTHYROXINE [Concomitant]
     Active Substance: LEVOTHYROXINE
  6. ACYCLOVIR [Concomitant]
     Active Substance: ACYCLOVIR
  7. ACETAMINOPHEN [Concomitant]
     Active Substance: ACETAMINOPHEN
  8. SODIUM CHLORIDE [Concomitant]
     Active Substance: SODIUM CHLORIDE
  9. POTASSIUM [Concomitant]
     Active Substance: POTASSIUM
  10. PRASTERONE [Concomitant]
     Active Substance: PRASTERONE
  11. OXYGEN [Concomitant]
     Active Substance: OXYGEN
  12. VITAMIN B [Concomitant]
     Active Substance: VITAMIN B
  13. VITAMIN C [Concomitant]
     Active Substance: ASCORBIC ACID
  14. VITAMIN D NOS [Concomitant]
     Active Substance: VITAMIN D NOS
  15. VITAMIN E [Concomitant]
     Active Substance: .ALPHA.-TOCOPHEROL
  16. CHROMIUM PICOLINATE [Concomitant]
     Active Substance: CHROMIUM PICOLINATE
  17. ZINC [Concomitant]
     Active Substance: ZINC
  18. COPPER [Concomitant]
     Active Substance: COPPER
  19. MAGNESIUM [Concomitant]
     Active Substance: MAGNESIUM
  20. ELECTROLYTES NOS [Concomitant]
     Active Substance: ELECTROLYTES NOS

REACTIONS (13)
  - Illness [None]
  - Bedridden [None]
  - Chills [None]
  - Hyperhidrosis [None]
  - Dizziness [None]
  - Nausea [None]
  - Fluid retention [None]
  - Headache [None]
  - Fatigue [None]
  - Dyspnoea [None]
  - Abdominal distension [None]
  - Arthralgia [None]
  - Thirst [None]

NARRATIVE: CASE EVENT DATE: 20220530
